FAERS Safety Report 17724756 (Version 6)
Quarter: 2020Q4

REPORT INFORMATION
  Report Type: Spontaneous
  Country: US (occurrence: US)
  Receive Date: 20200429
  Receipt Date: 20201026
  Transmission Date: 20210113
  Serious: No
  Sender: FDA-Public Use
  Company Number: US-PFIZER INC-2020165871

PATIENT
  Age: 79 Year
  Sex: Female
  Weight: 56.7 kg

DRUGS (2)
  1. CLINDAMYCIN PHOSPHATE. [Suspect]
     Active Substance: CLINDAMYCIN PHOSPHATE
     Dosage: 40 G, 2%
     Route: 067
  2. CLINDAMYCIN PHOSPHATE. [Suspect]
     Active Substance: CLINDAMYCIN PHOSPHATE
     Indication: VAGINAL INFECTION
     Dosage: UNK

REACTIONS (7)
  - Dizziness [Unknown]
  - Off label use [Unknown]
  - Product use issue [Unknown]
  - Abdominal pain upper [Unknown]
  - Circumstance or information capable of leading to device use error [Unknown]
  - Drug ineffective [Unknown]
  - Vulvovaginal pain [Unknown]
